FAERS Safety Report 15766542 (Version 1)
Quarter: 2018Q4

REPORT INFORMATION
  Report Type: Spontaneous
  Country: GB (occurrence: GB)
  Receive Date: 20181227
  Receipt Date: 20181227
  Transmission Date: 20190205
  Serious: Yes (Other)
  Sender: FDA-Public Use
  Company Number: GB-MYLANLABS-2018M1094783

PATIENT
  Age: 69 Year
  Sex: Female

DRUGS (1)
  1. MITOMYCIN. [Suspect]
     Active Substance: MITOMYCIN
     Indication: CONJUNCTIVAL MELANOMA
     Dosage: CYCLIC THERAPY
     Route: 061

REACTIONS (3)
  - Limbal stem cell deficiency [Recovering/Resolving]
  - Visual acuity reduced [Recovering/Resolving]
  - Toxicity to various agents [Unknown]
